FAERS Safety Report 15133282 (Version 1)
Quarter: 2018Q3

REPORT INFORMATION
  Report Type: Spontaneous
  Country: US (occurrence: US)
  Receive Date: 20180712
  Receipt Date: 20180712
  Transmission Date: 20181010
  Serious: Yes (Disabling, Other)
  Sender: FDA-Public Use
  Company Number: US-BION-007296

PATIENT
  Age: 48 Year
  Sex: Female

DRUGS (1)
  1. VALPROIC ACID. [Suspect]
     Active Substance: VALPROIC ACID
     Indication: BIPOLAR DISORDER
     Dosage: 1500 MG DAILY

REACTIONS (3)
  - Asterixis [Recovered/Resolved]
  - Tremor [Recovered/Resolved]
  - Mental disorder [Recovered/Resolved]
